FAERS Safety Report 9579080 (Version 1)
Quarter: 2013Q4

REPORT INFORMATION
  Report Type: Spontaneous
  Country: US (occurrence: US)
  Receive Date: 20131001
  Receipt Date: 20131001
  Transmission Date: 20140711
  Serious: No
  Sender: FDA-Public Use
  Company Number: US-AMGEN-USASP2013016586

PATIENT
  Age: 60 Year
  Sex: Female

DRUGS (1)
  1. ENBREL [Suspect]
     Indication: RHEUMATOID ARTHRITIS
     Dosage: UNK UNK, QWK (ONE TIME A WEEK)
     Dates: start: 2012

REACTIONS (5)
  - Arthralgia [Unknown]
  - Back pain [Unknown]
  - Musculoskeletal pain [Unknown]
  - Joint stiffness [Unknown]
  - Drug ineffective [Unknown]
